FAERS Safety Report 7778887-4 (Version None)
Quarter: 2011Q3

REPORT INFORMATION
  Report Type: 
  Country: None (occurrence: None)
  Receive Date: 20110926
  Receipt Date: 20110923
  Transmission Date: 20111222
  Serious: Yes (Other)
  Sender: FDA-Public Use
  Company Number: JM-BAYER-2011-090400

PATIENT
  Age: 47 Year
  Sex: Female
  Weight: 72 kg

DRUGS (1)
  1. ULTRAVIST 150 [Suspect]
     Indication: UROGRAM
     Dosage: 60 ML, ONCE
     Route: 042
     Dates: start: 20110919, end: 20110919

REACTIONS (4)
  - PRURITUS [None]
  - BURNING SENSATION [None]
  - SKIN EXFOLIATION [None]
  - HYPERHIDROSIS [None]
